FAERS Safety Report 10762935 (Version 1)
Quarter: 2015Q1

REPORT INFORMATION
  Report Type: Spontaneous
  Country: CN (occurrence: CN)
  Receive Date: 20150204
  Receipt Date: 20150204
  Transmission Date: 20150721
  Serious: Yes (Disabling, Other)
  Sender: FDA-Public Use
  Company Number: CN-WATSON-2015-00991

PATIENT
  Age: 15 Year
  Sex: Male

DRUGS (1)
  1. TRIAMCINOLONE ACETONIDE (WATSON LABORATORIES) [Suspect]
     Active Substance: TRIAMCINOLONE ACETONIDE
     Indication: VITILIGO
     Dosage: 1 ML, SINGLE
     Route: 058

REACTIONS (2)
  - Cerebral infarction [Not Recovered/Not Resolved]
  - Retinal artery occlusion [Not Recovered/Not Resolved]
